FAERS Safety Report 5242823-5 (Version None)
Quarter: 2007Q1

REPORT INFORMATION
  Report Type: 
  Country: None (occurrence: None)
  Receive Date: 20070214
  Receipt Date: 20070125
  Transmission Date: 20070707
  Serious: Yes (Death, Other)
  Sender: FDA-Public Use
  Company Number: ENC200600009

PATIENT
  Age: 65 Year
  Sex: Male

DRUGS (11)
  1. ARGATROBAN [Suspect]
     Indication: HEPARIN-INDUCED THROMBOCYTOPENIA
     Dosage: 0.5 MCG/KG/MIN, INTRAVENOUS
     Route: 042
     Dates: start: 20061224, end: 20061226
  2. MUCOMYST /00082801/ (ACETYLSCYSTEINE) [Concomitant]
  3. VANCOMYCIN [Concomitant]
  4. LIPITOR [Concomitant]
  5. IRON (IRON) [Concomitant]
  6. NEXIUM /01479302/ (ESOMEPRAZOLE MAGNESIUM) [Concomitant]
  7. SYNTHROID [Concomitant]
  8. CALCITRIOL (CALCITROL) [Concomitant]
  9. FLUCONAZOLE [Concomitant]
  10. PRIMAXIN /00788801/ (IMIPENEM) [Concomitant]
  11. INSULIN [Concomitant]

REACTIONS (4)
  - DISSEMINATED INTRAVASCULAR COAGULATION [None]
  - INTERNATIONAL NORMALISED RATIO INCREASED [None]
  - RESPIRATORY FAILURE [None]
  - SEPSIS [None]
